FAERS Safety Report 18213347 (Version 1)
Quarter: 2020Q3

REPORT INFORMATION
  Report Type: Spontaneous
  Country: DE (occurrence: DE)
  Receive Date: 20200831
  Receipt Date: 20200831
  Transmission Date: 20201103
  Serious: Yes (Hospitalization, Other)
  Sender: FDA-Public Use
  Company Number: DE-TEVA-2020-DE-1822849

PATIENT
  Age: 71 Year
  Sex: Male
  Weight: 74 kg

DRUGS (11)
  1. EISEN II [Concomitant]
     Active Substance: FERROUS SULFATE
     Dosage: 100 MILLIGRAM DAILY; 50 MG, 2?0?0?0
     Route: 048
  2. OXYCODON [Suspect]
     Active Substance: OXYCODONE
     Dosage: 10 MG, REQUIREMENT
     Route: 048
  3. OXYCODON [Suspect]
     Active Substance: OXYCODONE
     Dosage: 40 MILLIGRAM DAILY; 1?0?1?0
     Route: 048
  4. PREGABALIN. [Suspect]
     Active Substance: PREGABALIN
     Dosage: 200 MILLIGRAM DAILY; 50 MG, 2?0?2?0
     Route: 048
  5. DOCETAXEL. [Suspect]
     Active Substance: DOCETAXEL
     Dosage: NK NK, NK
     Route: 065
  6. TAMSULOSIN [Suspect]
     Active Substance: TAMSULOSIN
     Dosage: .4 MILLIGRAM DAILY; 1?0?0?0
     Route: 048
  7. PANTOPRAZOL [Concomitant]
     Active Substance: PANTOPRAZOLE SODIUM
     Dosage: 20 MILLIGRAM DAILY;  1?0?0?0
     Route: 048
  8. RAMIPRIL. [Suspect]
     Active Substance: RAMIPRIL
     Dosage: 5 MILLIGRAM DAILY; 1?0?0?0
     Route: 048
  9. ETORICOXIB. [Concomitant]
     Active Substance: ETORICOXIB
     Dosage: 90 MILLIGRAM DAILY; 0?1?0?0
     Route: 048
  10. PREDNISOLONE. [Concomitant]
     Active Substance: PREDNISOLONE
     Dosage: 10 MILLIGRAM DAILY; 1?0?1?0 DURING CHEMOTHERAPY
     Route: 048
  11. MIRTAZAPIN [Concomitant]
     Active Substance: MIRTAZAPINE
     Dosage: 15 MILLIGRAM DAILY;  0?0?1?0
     Route: 048

REACTIONS (2)
  - General physical health deterioration [Recovering/Resolving]
  - Syncope [Recovering/Resolving]

NARRATIVE: CASE EVENT DATE: 20191225
